FAERS Safety Report 5339472-7 (Version None)
Quarter: 2007Q2

REPORT INFORMATION
  Report Type: 
  Country: None (occurrence: None)
  Receive Date: 20070525
  Receipt Date: 20070514
  Transmission Date: 20071010
  Serious: Yes (Hospitalization)
  Sender: FDA-Public Use
  Company Number: CAP07000215

PATIENT
  Age: 77 Year
  Sex: Female
  Weight: 35.8 kg

DRUGS (3)
  1. MACRODANTIN [Suspect]
     Indication: URINARY TRACT INFECTION
     Dosage: ORAL
     Route: 048
     Dates: start: 20050101
  2. ZESTRIL [Concomitant]
  3. AZATHIOPRINE [Concomitant]

REACTIONS (7)
  - DYSPNOEA [None]
  - FATIGUE [None]
  - ORAL INTAKE REDUCED [None]
  - PULMONARY FIBROSIS [None]
  - RENAL IMPAIRMENT [None]
  - SHOCK [None]
  - WEIGHT DECREASED [None]
